FAERS Safety Report 16958354 (Version 1)
Quarter: 2019Q4

REPORT INFORMATION
  Report Type: Spontaneous
  Country: US (occurrence: US)
  Receive Date: 20191024
  Receipt Date: 20191024
  Transmission Date: 20200122
  Serious: No
  Sender: FDA-Public Use
  Company Number: US-ASTRAZENECA-2019SF37220

PATIENT

DRUGS (1)
  1. BYDUREON [Suspect]
     Active Substance: EXENATIDE
     Dosage: 2.0MG UNKNOWN
     Route: 065

REACTIONS (6)
  - Device issue [Unknown]
  - Injection site erosion [Unknown]
  - Injection site bruising [Unknown]
  - Injection site mass [Unknown]
  - Injection site pain [Unknown]
  - Injection site haemorrhage [Unknown]
